FAERS Safety Report 24608453 (Version 1)
Quarter: 2024Q4

REPORT INFORMATION
  Report Type: Spontaneous
  Country: DE (occurrence: None)
  Receive Date: 20241111
  Receipt Date: 20241111
  Transmission Date: 20250114
  Serious: Yes (Disabling)
  Sender: Public
  Company Number: None

PATIENT
  Age: 50 Year
  Sex: Female
  Weight: 58.5 kg

DRUGS (2)
  1. TUCKS HEMORRHOIDAL [Suspect]
     Active Substance: MINERAL OIL\PRAMOXINE HYDROCHLORIDE\ZINC OXIDE
     Indication: Haemorrhoids
     Dosage: 2 TEASPOON(S) EVERY 8 HOURS TOPICAL
     Route: 061
     Dates: start: 20241010, end: 20241019
  2. PREPARATION H NOS [Suspect]
     Active Substance: UNSPECIFIED INGREDIENT
     Indication: Haemorrhoids
     Dosage: 12 CAPSULES EVERY 8 HOURS RECTAL
     Route: 054
     Dates: start: 20241012, end: 20241019

REACTIONS (2)
  - Hypoaesthesia [None]
  - Hypoaesthesia [None]

NARRATIVE: CASE EVENT DATE: 20241020
